FAERS Safety Report 6410562-0 (Version None)
Quarter: 2009Q4

REPORT INFORMATION
  Report Type: 
  Country: None (occurrence: None)
  Receive Date: 20091022
  Receipt Date: 20091013
  Transmission Date: 20100525
  Serious: Yes (Hospitalization)
  Sender: FDA-Public Use
  Company Number: FR-GENENTECH-292552

PATIENT
  Sex: Female

DRUGS (4)
  1. HERCEPTIN [Suspect]
     Indication: BREAST CANCER
     Dosage: 800 MG, UNK
     Route: 042
     Dates: start: 20090926, end: 20090926
  2. HERCEPTIN [Suspect]
     Dosage: 150 MG, UNK
  3. TAXOTERE [Concomitant]
     Indication: DRUG USE FOR UNKNOWN INDICATION
     Dosage: UNK
  4. CARBOPLATIN [Concomitant]
     Indication: DRUG USE FOR UNKNOWN INDICATION
     Dosage: UNK

REACTIONS (4)
  - CHILLS [None]
  - DYSAESTHESIA PHARYNX [None]
  - OXYGEN SATURATION DECREASED [None]
  - PYREXIA [None]
